FAERS Safety Report 7501042-X (Version None)
Quarter: 2011Q2

REPORT INFORMATION
  Report Type: 
  Country: None (occurrence: None)
  Receive Date: 20110524
  Receipt Date: 20100601
  Transmission Date: 20111010
  Serious: No
  Sender: FDA-Public Use
  Company Number: US-NOVEN-ALL1-2010-03116

PATIENT

DRUGS (4)
  1. DEPAKOTE [Concomitant]
     Dosage: 250 MG, UNKNOWN
     Route: 048
  2. RISPERDAL [Concomitant]
     Dosage: 1 MG, UNKNOWN
     Route: 048
  3. DAYTRANA [Suspect]
     Dosage: 30 MG, 1X/DAY:QD
     Route: 062
  4. RITALIN [Concomitant]
     Dosage: 15 MG, 1X/DAY:QD
     Route: 048

REACTIONS (4)
  - PRODUCT QUALITY ISSUE [None]
  - AFFECT LABILITY [None]
  - OFF LABEL USE [None]
  - DRUG EFFECT DELAYED [None]
